FAERS Safety Report 8221927-9 (Version None)
Quarter: 2012Q1

REPORT INFORMATION
  Report Type: 
  Country: None (occurrence: None)
  Receive Date: 20120320
  Receipt Date: 20120312
  Transmission Date: 20120608
  Serious: Yes (Hospitalization)
  Sender: FDA-Public Use
  Company Number: CA-JNJFOC-20120305368

PATIENT
  Sex: Female
  Weight: 52.2 kg

DRUGS (2)
  1. REMICADE [Suspect]
     Route: 042
     Dates: start: 20120201, end: 20120201
  2. REMICADE [Suspect]
     Indication: RHEUMATOID ARTHRITIS
     Route: 042
     Dates: start: 20110101

REACTIONS (3)
  - ADVERSE EVENT [None]
  - ABASIA [None]
  - DRUG INEFFECTIVE [None]
